FAERS Safety Report 8924645 (Version 1)
Quarter: 2012Q4

REPORT INFORMATION
  Report Type: 
  Country: US (occurrence: US)
  Receive Date: 20121126
  Receipt Date: 20121126
  Transmission Date: 20130627
  Serious: No
  Sender: FDA-Public Use
  Company Number: US-PFIZER INC-2012291671

PATIENT
  Age: 81 Year
  Sex: Male

DRUGS (12)
  1. VISTARIL [Suspect]
     Indication: RUNNY NOSE
     Dosage: UNK
     Dates: start: 201210
  2. VISTARIL [Suspect]
     Indication: SNEEZING
  3. ALLEGRA [Suspect]
     Indication: RUNNY NOSE
     Dosage: 60 mg, 2x/day
     Route: 048
  4. ALLEGRA [Suspect]
     Indication: SNEEZING
  5. TYLENOL [Concomitant]
     Dosage: UNK
  6. ADVIL [Concomitant]
     Dosage: UNK
  7. ASPIRIN [Concomitant]
     Dosage: UNK
  8. PROZAC [Concomitant]
     Dosage: UNK
  9. VESICARE [Concomitant]
     Dosage: UNK
  10. FINASTERIDE [Concomitant]
     Dosage: UNK
  11. ZINC [Concomitant]
     Dosage: UNK
  12. OMEPRAZOLE [Concomitant]
     Dosage: UNK

REACTIONS (4)
  - Drug ineffective [Unknown]
  - Rhinorrhoea [Not Recovered/Not Resolved]
  - Nasal congestion [Unknown]
  - Sneezing [Not Recovered/Not Resolved]
